FAERS Safety Report 7207363-2 (Version None)
Quarter: 2011Q1

REPORT INFORMATION
  Report Type: 
  Country: None (occurrence: None)
  Receive Date: 20110103
  Receipt Date: 20101221
  Transmission Date: 20110831
  Serious: Yes (Death)
  Sender: FDA-Public Use
  Company Number: CN-SANOFI-AVENTIS-2010SA076727

PATIENT
  Age: 40 Year
  Sex: Male

DRUGS (2)
  1. ALL OTHER THERAPEUTIC PRODUCTS [Concomitant]
     Indication: PSORIASIS
     Route: 065
  2. STILNOX [Suspect]
     Indication: INSOMNIA
     Route: 048
     Dates: start: 20101220, end: 20101220

REACTIONS (1)
  - DEATH [None]
